FAERS Safety Report 9388823 (Version 3)
Quarter: 2013Q3

REPORT INFORMATION
  Report Type: Spontaneous
  Country: DE (occurrence: DE)
  Receive Date: 20130708
  Receipt Date: 20130729
  Transmission Date: 20140515
  Serious: Yes (Other)
  Sender: FDA-Public Use
  Company Number: DE-US-EMD SERONO, INC.-7221540

PATIENT
  Sex: Male

DRUGS (5)
  1. REBIF [Suspect]
     Indication: MULTIPLE SCLEROSIS
     Route: 058
     Dates: start: 1999, end: 2000
  2. REBIF [Suspect]
     Route: 058
     Dates: start: 2000, end: 201306
  3. IBUPROFEN [Concomitant]
     Indication: PRODUCT USED FOR UNKNOWN INDICATION
  4. SPASMEX                            /00376202/ [Concomitant]
     Indication: NEUROGENIC BLADDER
  5. DETRUSITOL                         /01350201/ [Concomitant]
     Indication: PRODUCT USED FOR UNKNOWN INDICATION
     Dates: start: 1999, end: 2002

REACTIONS (3)
  - Liver sarcoidosis [Not Recovered/Not Resolved]
  - Pulmonary sarcoidosis [Not Recovered/Not Resolved]
  - Multiple sclerosis relapse [Recovered/Resolved]
